FAERS Safety Report 9125383 (Version 2)
Quarter: 2013Q3

REPORT INFORMATION
  Report Type: Report from Study
  Country: FR (occurrence: FR)
  Receive Date: 20130121
  Receipt Date: 20130914
  Transmission Date: 20140515
  Serious: Yes (Other)
  Sender: FDA-Public Use
  Company Number: FR-AMGEN-FRANI2013003574

PATIENT
  Age: 63 Year
  Sex: Male

DRUGS (6)
  1. PANITUMUMAB [Suspect]
     Indication: COLORECTAL CANCER METASTATIC
     Dosage: 6 MG/KG, Q2WK
     Route: 042
     Dates: start: 20120531, end: 20121128
  2. KARDEGIC [Concomitant]
     Dosage: UNK
  3. COVERSYL [Concomitant]
     Dosage: UNK
  4. TAVOR [Concomitant]
     Dosage: UNK
  5. BISOPROLOL [Concomitant]
     Dosage: UNK
  6. DEROXAT [Concomitant]
     Dosage: UNK

REACTIONS (5)
  - Hypomagnesaemia [Unknown]
  - Xerosis [Unknown]
  - Hypertrichosis [Unknown]
  - Paronychia [Unknown]
  - Dermatitis acneiform [Unknown]
